FAERS Safety Report 4844674-X (Version None)
Quarter: 2005Q4

REPORT INFORMATION
  Report Type: 
  Country: None (occurrence: None)
  Receive Date: 20051129
  Receipt Date: 20051116
  Transmission Date: 20060501
  Serious: Yes (Death, Disabling, Other)
  Sender: FDA-Public Use
  Company Number: 2005057492

PATIENT
  Age: 59 Year
  Sex: Male

DRUGS (7)
  1. ZYVOX [Suspect]
     Indication: PNEUMONIA STAPHYLOCOCCAL
     Dosage: 1200 MG, INTRAVENOUS
     Route: 042
     Dates: start: 20050312, end: 20050328
  2. BACTRIM [Suspect]
     Indication: PNEUMONIA STAPHYLOCOCCAL
     Dosage: 7.5 MGL, INTRAVENOUS
     Route: 042
     Dates: start: 20050308, end: 20050328
  3. MINOCYCLINE HCL [Suspect]
     Indication: PNEUMONIA STAPHYLOCOCCAL
     Dosage: 100 MG, INTRAVENOUS
     Route: 042
     Dates: start: 20050308, end: 20050428
  4. MEROPEN (MEROPENEM) [Suspect]
     Indication: PNEUMONIA
     Dosage: 0.5 GRAM (INTERVAL EVERY OTHER DAY), INTRAVENOUS
     Route: 042
     Dates: start: 20050304, end: 20050328
  5. VANCOMYCIN [Suspect]
     Indication: STAPHYLOCOCCAL INFECTION
     Dosage: INTRAVENOUS
     Route: 042
     Dates: start: 20050302, end: 20050310
  6. PREDNISOLONE [Suspect]
     Indication: SYSTEMIC LUPUS ERYTHEMATOSUS
     Dosage: INTRAVENOUS
     Route: 042
     Dates: start: 20050223
  7. THROMBIN LOCAL SOLUTION [Concomitant]

REACTIONS (4)
  - RETINAL EXUDATES [None]
  - RETINAL HAEMORRHAGE [None]
  - VISUAL ACUITY REDUCED [None]
  - VISUAL DISTURBANCE [None]
